FAERS Safety Report 8586238-0 (Version None)
Quarter: 2012Q3

REPORT INFORMATION
  Report Type: 
  Country: None (occurrence: None)
  Receive Date: 20120810
  Receipt Date: 20120806
  Transmission Date: 20120928
  Serious: Yes (Other)
  Sender: FDA-Public Use
  Company Number: PHHY2012BR068759

PATIENT
  Sex: Female

DRUGS (1)
  1. RITALIN [Suspect]
     Indication: ATTENTION DEFICIT/HYPERACTIVITY DISORDER
     Dosage: 10 MG, Q4H

REACTIONS (5)
  - LEARNING DISORDER [None]
  - SCHOOL REFUSAL [None]
  - ANXIETY [None]
  - AGITATION [None]
  - INTENTIONAL SELF-INJURY [None]
